FAERS Safety Report 14391038 (Version 6)
Quarter: 2019Q2

REPORT INFORMATION
  Report Type: Spontaneous
  Country: US (occurrence: US)
  Receive Date: 20180116
  Receipt Date: 20190617
  Transmission Date: 20190711
  Serious: No
  Sender: FDA-Public Use
  Company Number: US-PFIZER INC-2018016000

PATIENT
  Age: 59 Year
  Sex: Female

DRUGS (5)
  1. LYRICA [Suspect]
     Active Substance: PREGABALIN
     Indication: NERVE INJURY
     Dosage: 300 MG, UNK (REDUCED TO 300 MG)
     Route: 048
  2. LYRICA [Suspect]
     Active Substance: PREGABALIN
     Indication: NEURALGIA
  3. LYRICA [Suspect]
     Active Substance: PREGABALIN
     Indication: PAIN IN EXTREMITY
     Dosage: 400 MG, UNK
     Route: 048
     Dates: start: 2007
  4. TOPAMAX [Concomitant]
     Active Substance: TOPIRAMATE
     Indication: NEURALGIA
     Dosage: 200 MG, 1X/DAY
     Route: 048
  5. LYRICA [Suspect]
     Active Substance: PREGABALIN
     Indication: SPINAL FUSION SURGERY
     Dosage: 100 MG, ONCE DAILY(3 MONTHS (90 D) AS NEEDED)
     Route: 048

REACTIONS (20)
  - Skin laxity [Unknown]
  - Concussion [Unknown]
  - Fall [Unknown]
  - Visual impairment [Unknown]
  - Speech disorder [Unknown]
  - Inner ear disorder [Unknown]
  - Gait inability [Unknown]
  - Dysphemia [Unknown]
  - Musculoskeletal pain [Unknown]
  - Alopecia [Unknown]
  - Abdominal discomfort [Unknown]
  - Contusion [Unknown]
  - Mass [Unknown]
  - Headache [Unknown]
  - Insomnia [Unknown]
  - Dizziness [Unknown]
  - Diplopia [Unknown]
  - Neck pain [Unknown]
  - Feeling abnormal [Unknown]
  - Vertigo [Unknown]

NARRATIVE: CASE EVENT DATE: 20170818
